FAERS Safety Report 14567110 (Version 5)
Quarter: 2018Q2

REPORT INFORMATION
  Report Type: Spontaneous
  Country: FR (occurrence: FR)
  Receive Date: 20180223
  Receipt Date: 20180427
  Transmission Date: 20180711
  Serious: Yes (Hospitalization, Other)
  Sender: FDA-Public Use
  Company Number: FR-AUROBINDO-AUR-APL-2018-009754

PATIENT
  Age: 14 Year
  Sex: Female
  Weight: 39 kg

DRUGS (33)
  1. VINCRISTINE [Suspect]
     Active Substance: VINCRISTINE
     Dosage: 1.5 MG, UNK
  2. VINCRISTINE [Suspect]
     Active Substance: VINCRISTINE
  3. CASPOFUNGIN [Concomitant]
     Active Substance: CASPOFUNGIN
     Dosage: 50 MG, UNK
  4. FUROSEMIDE. [Concomitant]
     Active Substance: FUROSEMIDE
     Indication: PRODUCT USED FOR UNKNOWN INDICATION
     Dosage: STARTED THE DAY 159 ()
     Route: 065
  5. PHLOROGLUCINOL [Concomitant]
     Active Substance: PHLOROGLUCINOL
     Indication: PRODUCT USED FOR UNKNOWN INDICATION
     Dosage: FROM THE DAY 154 TO DAY 164 ()
  6. GRANULOCYTE COLONY STIMULATING FACTOR [Concomitant]
     Active Substance: GRANULOCYTE COLONY-STIMULATING FACTOR NOS
     Indication: PRODUCT USED FOR UNKNOWN INDICATION
     Dosage: FROM THE DAY 154 TO DAY 164 ()
  7. TRIMETHOPRIM. [Concomitant]
     Active Substance: TRIMETHOPRIM
     Indication: PRODUCT USED FOR UNKNOWN INDICATION
     Dosage: STARTED THE DAY 159 ()
  8. AMIKACIN. [Concomitant]
     Active Substance: AMIKACIN
     Indication: PRODUCT USED FOR UNKNOWN INDICATION
     Dosage: STARTED THE DAY 155 ()
  9. VANCOMYCIN [Concomitant]
     Active Substance: VANCOMYCIN
     Indication: PRODUCT USED FOR UNKNOWN INDICATION
     Dosage: STARTED THE DAY 155 ()
  10. TRIMETHOPRIM. [Concomitant]
     Active Substance: TRIMETHOPRIM
     Dosage: ()
     Route: 065
  11. IMIPENEM [Concomitant]
     Active Substance: IMIPENEM
     Indication: PRODUCT USED FOR UNKNOWN INDICATION
     Dosage: STARTED THE DAY 155 ()
  12. IMIPENEM [Concomitant]
     Active Substance: IMIPENEM
     Dosage: ()
     Route: 065
  13. GABAPENTIN. [Concomitant]
     Active Substance: GABAPENTIN
     Indication: PRODUCT USED FOR UNKNOWN INDICATION
     Dosage: FROM THE DAY 154 TO DAY 164, 400 MG, 8 HOURS
     Route: 065
  14. AMPHOTERICIN B. [Concomitant]
     Active Substance: AMPHOTERICIN B
     Dosage: ()
     Route: 065
  15. VORICONAZOLE POWDER FOR SOLUTION FOR INFUSION [Suspect]
     Active Substance: VORICONAZOLE
     Indication: BRONCHOPULMONARY ASPERGILLOSIS
     Dosage: 300 MG, TWO TIMES A DAY
     Route: 042
  16. METHOTREXATE. [Concomitant]
     Active Substance: METHOTREXATE
     Indication: ACUTE LYMPHOCYTIC LEUKAEMIA
     Dosage: 5.5 G, UNK
     Route: 041
  17. CASPOFUNGIN [Concomitant]
     Active Substance: CASPOFUNGIN
     Dosage: 50 MG, LAST DOSE THE DAY 164
     Route: 065
  18. SULFAMETHOXAZOLE [Concomitant]
     Active Substance: SULFAMETHOXAZOLE
     Indication: PRODUCT USED FOR UNKNOWN INDICATION
     Dosage: STARTED THE DAY 159 ()
  19. PHLOROGLUCINOL [Concomitant]
     Active Substance: PHLOROGLUCINOL
     Dosage: FROM THE DAY 154 TO 164 ()
     Route: 065
  20. PARACETAMOL [Concomitant]
     Active Substance: ACETAMINOPHEN
     Indication: PRODUCT USED FOR UNKNOWN INDICATION
     Dosage: FROM THE DAY 154 TO DAY 164 ()
  21. VINCRISTINE [Suspect]
     Active Substance: VINCRISTINE
     Dosage: 2 MG, UNK
     Route: 065
  22. VINCRISTINE [Suspect]
     Active Substance: VINCRISTINE
     Dosage: 2 MG, UNK
     Route: 042
  23. VINCRISTINE [Suspect]
     Active Substance: VINCRISTINE
     Dosage: ()
  24. CASPOFUNGIN [Concomitant]
     Active Substance: CASPOFUNGIN
     Indication: PRODUCT USED FOR UNKNOWN INDICATION
     Dosage: LAST DOSE THE DAY 164, 50 MG, DAILY
  25. SULFAMETHOXAZOLE [Concomitant]
     Active Substance: SULFAMETHOXAZOLE
     Dosage: ()
     Route: 065
  26. AMIKACIN. [Concomitant]
     Active Substance: AMIKACIN
     Dosage: LAST DOSE THE DAY 164
     Route: 065
  27. AMPHOTERICIN B. [Concomitant]
     Active Substance: AMPHOTERICIN B
     Indication: PRODUCT USED FOR UNKNOWN INDICATION
     Dosage: STARTED THE DAY 159 ()
  28. PARACETAMOL [Concomitant]
     Active Substance: ACETAMINOPHEN
     Dosage: FROM THE DAY 154 TO DAY 164 ()
     Route: 065
  29. VINCRISTINE [Suspect]
     Active Substance: VINCRISTINE
     Indication: ACUTE LYMPHOCYTIC LEUKAEMIA
     Dosage: FRALLE 2000-BT PROTOCOL
     Route: 042
  30. VINCRISTINE [Suspect]
     Active Substance: VINCRISTINE
     Dosage: 1.5 MG
     Route: 042
  31. VANCOMYCIN [Concomitant]
     Active Substance: VANCOMYCIN
     Dosage: ()
     Route: 065
  32. VORICONAZOLE POWDER FOR SOLUTION FOR INFUSION [Interacting]
     Active Substance: VORICONAZOLE
     Dosage: 300 MG, TWO TIMES A DAY
     Route: 042
  33. FUROSEMIDE. [Concomitant]
     Active Substance: FUROSEMIDE
     Dosage: STARTED THE DAY 159 ()
     Route: 065

REACTIONS (23)
  - Condition aggravated [Recovered/Resolved]
  - Disorientation [Unknown]
  - Labelled drug-drug interaction medication error [Recovering/Resolving]
  - Encephalopathy [Recovered/Resolved]
  - Drug interaction [Recovered/Resolved]
  - Hypoaesthesia [Unknown]
  - Hallucination, auditory [Unknown]
  - Treatment failure [Unknown]
  - Arthralgia [Unknown]
  - Confusional state [Unknown]
  - Drug level above therapeutic [Unknown]
  - Nervous system disorder [Recovered/Resolved]
  - Disease progression [Recovering/Resolving]
  - Hallucination, visual [Unknown]
  - Neurotoxicity [Recovered/Resolved]
  - Bronchopulmonary aspergillosis [Recovering/Resolving]
  - Neuralgia [Recovered/Resolved]
  - Musculoskeletal pain [Unknown]
  - Hepatosplenic candidiasis [Recovering/Resolving]
  - Inflammation [Recovered/Resolved]
  - Drug level below therapeutic [Recovered/Resolved]
  - Respiratory distress [Recovered/Resolved]
  - Drug level increased [Recovered/Resolved]
